FAERS Safety Report 6687253-4 (Version None)
Quarter: 2010Q2

REPORT INFORMATION
  Report Type: 
  Country: None (occurrence: None)
  Receive Date: 20100419
  Receipt Date: 20100408
  Transmission Date: 20101027
  Serious: Yes (Other)
  Sender: FDA-Public Use
  Company Number: JP-PFIZER INC-2010043079

PATIENT
  Age: 65 Year
  Sex: Male

DRUGS (4)
  1. UNASYN [Suspect]
     Indication: PNEUMONIA
     Dosage: 6 G/DAY TWICE DAILY
     Route: 042
     Dates: start: 20100329, end: 20100401
  2. ELCITONIN [Concomitant]
     Route: 042
  3. ZOMETA [Concomitant]
     Indication: HYPERCALCAEMIA
     Route: 042
  4. SOLITA-T1 INJECTION [Concomitant]
     Indication: HYPERCALCAEMIA
     Route: 042

REACTIONS (1)
  - BLOOD SODIUM INCREASED [None]
